FAERS Safety Report 19190426 (Version 2)
Quarter: 2021Q2

REPORT INFORMATION
  Report Type: Report from Study
  Country: FR (occurrence: FR)
  Receive Date: 20210428
  Receipt Date: 20210617
  Transmission Date: 20210717
  Serious: Yes (Hospitalization, Other)
  Sender: FDA-Public Use
  Company Number: FR-INTERCEPT-CT2021000322

PATIENT
  Age: 61 Year
  Sex: Male
  Weight: 130 kg

DRUGS (8)
  1. PLAVIX [Concomitant]
     Active Substance: CLOPIDOGREL BISULFATE
     Indication: ATRIAL FIBRILLATION
     Dosage: 75 MILLIGRAM, QD
     Route: 048
     Dates: start: 201004
  2. AZINC OPTIMAL [Concomitant]
     Indication: VITAMIN SUPPLEMENTATION
     Dosage: 2 TABLET, QD
     Route: 048
     Dates: start: 200703
  3. CALTRATE WITH VITAMIN D [Concomitant]
     Active Substance: CALCIUM CARBONATE\CHOLECALCIFEROL
     Indication: VITAMIN SUPPLEMENTATION
     Dosage: 500/400 MILLIGRAM/INTERNATIONAL UNIT, BID
     Route: 048
     Dates: start: 200703
  4. HEMIGOXINE [Concomitant]
     Active Substance: DIGOXIN
     Indication: ATRIAL FIBRILLATION
     Dosage: 0.125 MILLIGRAM, QD
     Route: 048
     Dates: start: 201004
  5. OBETICHOLIC ACID [Suspect]
     Active Substance: OBETICHOLIC ACID
     Indication: NON-ALCOHOLIC STEATOHEPATITIS
     Dosage: 25 MILLIGRAM, QD
     Route: 048
     Dates: start: 20170523
  6. TOCO [Concomitant]
     Active Substance: .ALPHA.-TOCOPHEROL ACETATE, D-
     Indication: NON-ALCOHOLIC STEATOHEPATITIS
     Dosage: 500 MILLIGRAM, QD
     Route: 048
     Dates: start: 2010
  7. SILODYX [Concomitant]
     Active Substance: SILODOSIN
     Indication: PROSTATIC ADENOMA
     Dosage: 8 MILLIGRAM, QD
     Route: 048
     Dates: start: 20190122
  8. UVEDOSE [Concomitant]
     Active Substance: CHOLECALCIFEROL
     Indication: VITAMIN SUPPLEMENTATION
     Dosage: 100000 INTERNATIONAL UNIT, EVERY 3 MONTH
     Route: 048
     Dates: start: 200703

REACTIONS (4)
  - Gastric ulcer haemorrhage [Recovered/Resolved]
  - Cholangitis [Recovered/Resolved]
  - Acute kidney injury [Recovered/Resolved]
  - Oesophageal varices haemorrhage [Recovered/Resolved]

NARRATIVE: CASE EVENT DATE: 20210123
